FAERS Safety Report 25259097 (Version 1)
Quarter: 2025Q2

REPORT INFORMATION
  Report Type: Spontaneous
  Country: CN (occurrence: CN)
  Receive Date: 20250501
  Receipt Date: 20250501
  Transmission Date: 20250717
  Serious: Yes (Hospitalization)
  Sender: ROCHE
  Company Number: None

PATIENT
  Age: 55 Year
  Sex: Male
  Weight: 74 kg

DRUGS (5)
  1. MYCOPHENOLATE MOFETIL [Suspect]
     Active Substance: MYCOPHENOLATE MOFETIL
     Indication: Prophylaxis against transplant rejection
     Route: 048
     Dates: start: 2015
  2. TACROLIMUS [Suspect]
     Active Substance: TACROLIMUS
     Indication: Prophylaxis against transplant rejection
     Route: 048
     Dates: start: 2015, end: 202312
  3. PREDNISONE ACETATE [Suspect]
     Active Substance: PREDNISONE ACETATE
     Indication: Prophylaxis against transplant rejection
     Route: 048
     Dates: start: 2015
  4. FELODIPINE [Concomitant]
     Active Substance: FELODIPINE
     Indication: Hypertension
     Dosage: SUSTAINED-RELEASE
     Route: 048
  5. SACUBITRIL\VALSARTAN [Concomitant]
     Active Substance: SACUBITRIL\VALSARTAN
     Indication: Hypertension
     Route: 048

REACTIONS (5)
  - Pneumonia fungal [Recovered/Resolved]
  - Legionella infection [Unknown]
  - Adenovirus infection [Unknown]
  - Allergic respiratory disease [Recovered/Resolved]
  - Alternaria infection [Recovered/Resolved]

NARRATIVE: CASE EVENT DATE: 20231201
